FAERS Safety Report 8513151-7 (Version None)
Quarter: 2012Q3

REPORT INFORMATION
  Report Type: 
  Country: None (occurrence: None)
  Receive Date: 20120716
  Receipt Date: 20120712
  Transmission Date: 20120928
  Serious: Yes (Hospitalization)
  Sender: FDA-Public Use
  Company Number: JP-009507513-1207JPN004338

PATIENT

DRUGS (6)
  1. AROGLYCEM [Suspect]
     Route: 048
     Dates: start: 20111208, end: 20111208
  2. ALFACALCIDOL [Concomitant]
     Indication: OSTEOPOROSIS
     Dosage: 1
     Route: 048
  3. RISEDRONATE SODIUM [Concomitant]
     Indication: OSTEOPOROSIS
     Dosage: UNKNOWN
     Route: 048
  4. AROGLYCEM [Suspect]
     Route: 048
     Dates: start: 20111207, end: 20111208
  5. AROGLYCEM [Suspect]
     Dosage: 100 MG: MORNING, 75 MG: NOON AND EVENING
     Route: 048
     Dates: start: 20111209, end: 20111220
  6. AMLODIPINE [Concomitant]
     Indication: HYPERTENSION
     Dosage: UNKNOWN
     Route: 048

REACTIONS (3)
  - PANCYTOPENIA [None]
  - HYPOKALAEMIA [None]
  - HYPOCALCAEMIA [None]
